FAERS Safety Report 4358889-0 (Version None)
Quarter: 2004Q2

REPORT INFORMATION
  Report Type: 
  Country: None (occurrence: None)
  Receive Date: 20040517
  Receipt Date: 20040405
  Transmission Date: 20050107
  Serious: Yes (Other)
  Sender: FDA-Public Use
  Company Number: PHEH2004US03853

PATIENT
  Age: 67 Year
  Sex: Female
  Weight: 73 kg

DRUGS (19)
  1. ZELNORM [Suspect]
     Indication: IRRITABLE BOWEL SYNDROME
     Dosage: 6 MG, BID
     Route: 048
     Dates: start: 20030601, end: 20040403
  2. TRANXENE [Concomitant]
  3. ENALAPRIL MALEATE [Concomitant]
     Dosage: 2.5 MG, QD
  4. THYROID TAB [Concomitant]
  5. LASIX [Concomitant]
  6. POTASSIUM [Concomitant]
  7. BEXTRA [Concomitant]
  8. PREVACID [Concomitant]
  9. ASPIRIN [Concomitant]
     Dosage: 81 MG, UNK
  10. CALCIUM W/VITAMIN D NOS [Concomitant]
     Dosage: UNK, BID
  11. GARLIC [Concomitant]
  12. MSM [Concomitant]
  13. OMEGA [Concomitant]
  14. LYSINE [Concomitant]
  15. VITAMIN C [Concomitant]
  16. PRAVIGARD PAC [Concomitant]
  17. VITAMIN E [Concomitant]
  18. VITAMIN B COMPLEX CAP [Concomitant]
  19. GLUCOSAMINE [Concomitant]

REACTIONS (10)
  - DYSKINESIA [None]
  - DYSTONIA [None]
  - JOINT STIFFNESS [None]
  - MUSCLE TIGHTNESS [None]
  - OCULOGYRATION [None]
  - TARDIVE DYSKINESIA [None]
  - TONGUE BITING [None]
  - TONGUE BLISTERING [None]
  - TREMOR [None]
  - TRISMUS [None]
